FAERS Safety Report 7936653 (Version 3)
Quarter: 2014Q1

REPORT INFORMATION
  Report Type: Report from Study
  Country: US (occurrence: US)
  Receive Date: 20110509
  Receipt Date: 20140331
  Transmission Date: 20141002
  Serious: Yes (Hospitalization)
  Sender: FDA-Public Use
  Company Number: US-ALEXION-A201001499

PATIENT
  Age: 84 Year
  Sex: Male
  Weight: 69 kg

DRUGS (16)
  1. SOLIRIS [Suspect]
     Indication: PAROXYSMAL NOCTURNAL HAEMOGLOBINURIA
     Dosage: UNK
     Route: 042
  2. SOLIRIS [Suspect]
     Dosage: 900 MG, Q2W
     Route: 042
     Dates: start: 20101122, end: 201103
  3. FOLIC ACID [Concomitant]
     Indication: PAROXYSMAL NOCTURNAL HAEMOGLOBINURIA
     Dosage: 1 MG, QD
     Route: 048
  4. PREDNISONE [Concomitant]
     Indication: PAROXYSMAL NOCTURNAL HAEMOGLOBINURIA
     Dosage: 40 MG, QD
     Route: 048
  5. PREDNISONE [Concomitant]
     Dosage: 20 MG, QD
     Route: 048
     Dates: end: 201011
  6. PREDNISONE [Concomitant]
     Dosage: 40 MG, QD
     Route: 048
     Dates: start: 201011
  7. TAMSULOSIN [Concomitant]
     Indication: BENIGN PROSTATIC HYPERPLASIA
     Dosage: 0.4 MG, QD
     Route: 048
  8. INSULIN [Concomitant]
     Indication: DIABETES MELLITUS
     Dosage: 6 IU, QD
     Route: 058
  9. LUPRON [Concomitant]
     Indication: PROSTATE CANCER
     Dosage: UNK, Q3MONTHS
     Dates: start: 20101103
  10. ENALAPRIL MALEATE [Concomitant]
     Dosage: 10 MG, QD
     Route: 048
  11. LANTUS [Concomitant]
     Indication: DIABETES MELLITUS
     Dosage: HS10 IU, QD
     Route: 058
  12. LANTUS [Concomitant]
     Dosage: 14 IU, QD HS
  13. MUCINEX D [Concomitant]
     Dosage: 600 MG-60 MG, Q 12H
     Route: 048
  14. PRILOSEC [Concomitant]
     Dosage: 20 MG, QD
     Route: 048
  15. SYMBICORT [Concomitant]
     Dosage: 4.5 ?G, AS DIRECTED
  16. XANAX [Concomitant]
     Dosage: 0.5 MG, QD HS
     Route: 048

REACTIONS (6)
  - Anaemia [Recovered/Resolved]
  - Blood lactate dehydrogenase increased [Not Recovered/Not Resolved]
  - Platelet count decreased [Recovered/Resolved]
  - Blood glucose increased [Recovered/Resolved]
  - Pollakiuria [Unknown]
  - Drug ineffective [Unknown]
